FAERS Safety Report 17982272 (Version 1)
Quarter: 2020Q3

REPORT INFORMATION
  Report Type: Spontaneous
  Country: BE (occurrence: BE)
  Receive Date: 20200706
  Receipt Date: 20200706
  Transmission Date: 20201103
  Serious: Yes (Hospitalization, Other)
  Sender: FDA-Public Use
  Company Number: BE-SUN PHARMACEUTICAL INDUSTRIES LTD-2020R1-252368

PATIENT
  Age: 59 Year
  Sex: Female

DRUGS (3)
  1. LEVOFOLINIC ACID [Concomitant]
     Active Substance: LEVOLEUCOVORIN
     Indication: RECTAL ADENOCARCINOMA
     Dosage: 200 MILLIGRAM/SQ. METER
     Route: 065
  2. FLUOROURACIL. [Concomitant]
     Active Substance: FLUOROURACIL
     Indication: RECTAL ADENOCARCINOMA
     Dosage: 400 MG/ M? BOLUS WITH 2400 MG/M?/46 H INFUSOR
     Route: 065
  3. OXALIPLATIN. [Suspect]
     Active Substance: OXALIPLATIN
     Indication: RECTAL ADENOCARCINOMA
     Dosage: 85 MILLIGRAM/SQ. METER
     Route: 065

REACTIONS (3)
  - Blindness cortical [Recovered/Resolved]
  - Posterior reversible encephalopathy syndrome [Recovered/Resolved]
  - Blood pressure increased [Recovered/Resolved]
